FAERS Safety Report 10464218 (Version 1)
Quarter: 2014Q3

REPORT INFORMATION
  Report Type: Spontaneous
  Country: TR (occurrence: TR)
  Receive Date: 20140919
  Receipt Date: 20140919
  Transmission Date: 20150326
  Serious: Yes (Hospitalization)
  Sender: FDA-Public Use
  Company Number: TR-ASPEN PHARMA TRADING LIMITED US-AG-2014-005835

PATIENT
  Age: 63 Year
  Sex: Male

DRUGS (16)
  1. CHLORAMBUCIL [Suspect]
     Active Substance: CHLORAMBUCIL
     Indication: CHRONIC LYMPHOCYTIC LEUKAEMIA
     Route: 048
     Dates: start: 20140708, end: 20140709
  2. CHLORAMBUCIL [Suspect]
     Active Substance: CHLORAMBUCIL
     Route: 048
     Dates: start: 20140722, end: 20140722
  3. INSULIN (HUMAN) [Concomitant]
     Indication: PRODUCT USED FOR UNKNOWN INDICATION
     Route: 058
     Dates: start: 2009
  4. FILGRASTIM [Concomitant]
     Active Substance: FILGRASTIM
     Dosage: 48 MILLION UNITS
     Route: 058
     Dates: start: 20140903
  5. CEFAZOLIN [Concomitant]
     Active Substance: CEFAZOLIN
     Indication: PRODUCT USED FOR UNKNOWN INDICATION
     Route: 042
     Dates: start: 20140805, end: 20140818
  6. LEVOFLOXACIN [Concomitant]
     Active Substance: LEVOFLOXACIN
     Indication: PRODUCT USED FOR UNKNOWN INDICATION
     Route: 048
     Dates: start: 20140903
  7. OBINUTUZUMAB SOLUTION FOR INFUSION [Suspect]
     Active Substance: OBINUTUZUMAB
     Indication: CHRONIC LYMPHOCYTIC LEUKAEMIA
     Dosage: CYCLE 1 DAY 1
     Route: 042
     Dates: start: 20140708, end: 20140708
  8. OBINUTUZUMAB SOLUTION FOR INFUSION [Suspect]
     Active Substance: OBINUTUZUMAB
     Dosage: CYCLE 1 DAY 2
     Route: 042
     Dates: start: 20140709, end: 20140709
  9. FILGRASTIM [Concomitant]
     Active Substance: FILGRASTIM
     Indication: PRODUCT USED FOR UNKNOWN INDICATION
     Dosage: 48 MILLION UNITS
     Route: 058
  10. OBINUTUZUMAB SOLUTION FOR INFUSION [Suspect]
     Active Substance: OBINUTUZUMAB
     Dosage: CYCLE 1 DAY 15
     Route: 042
     Dates: start: 20140722, end: 20140722
  11. AMIKACIN [Concomitant]
     Active Substance: AMIKACIN
     Indication: PRODUCT USED FOR UNKNOWN INDICATION
     Route: 042
     Dates: start: 20140717, end: 20140723
  12. THROMBOCYTES [Concomitant]
     Active Substance: UNSPECIFIED INGREDIENT
     Indication: PRODUCT USED FOR UNKNOWN INDICATION
     Route: 042
     Dates: start: 20140806, end: 20140808
  13. DICLOFENAC [Concomitant]
     Active Substance: DICLOFENAC
     Indication: PRODUCT USED FOR UNKNOWN INDICATION
     Route: 042
     Dates: start: 20140805, end: 20140818
  14. FILGRASTIM [Concomitant]
     Active Substance: FILGRASTIM
     Dosage: 48 MILLION UNITS
     Route: 058
  15. TRAMADOL [Concomitant]
     Active Substance: TRAMADOL
     Indication: PRODUCT USED FOR UNKNOWN INDICATION
     Route: 042
     Dates: start: 20140805, end: 20140818
  16. OBINUTUZUMAB SOLUTION FOR INFUSION [Suspect]
     Active Substance: OBINUTUZUMAB
     Dosage: CYCLE 1 DAY 8
     Route: 042
     Dates: start: 20140715, end: 20140715

REACTIONS (1)
  - Pneumonia [Recovered/Resolved]

NARRATIVE: CASE EVENT DATE: 20140903
